FAERS Safety Report 11178218 (Version 2)
Quarter: 2015Q2

REPORT INFORMATION
  Report Type: Spontaneous
  Country: BE (occurrence: BE)
  Receive Date: 20150610
  Receipt Date: 20150624
  Transmission Date: 20150821
  Serious: Yes (Hospitalization, Other)
  Sender: FDA-Public Use
  Company Number: BE-BAYER-2015-319014

PATIENT
  Age: 58 Year
  Sex: Male

DRUGS (3)
  1. GADOVIST [Suspect]
     Active Substance: GADOBUTROL
     Indication: CATHETER SITE GRANULOMA
  2. GADOVIST [Suspect]
     Active Substance: GADOBUTROL
     Indication: NUCLEAR MAGNETIC RESONANCE IMAGING SPINAL
     Dosage: 8 ML, ONCE
     Route: 042
     Dates: start: 20150605, end: 20150605
  3. MORPHINE [Concomitant]
     Active Substance: MORPHINE
     Indication: PAIN

REACTIONS (10)
  - Back pain [Recovered/Resolved]
  - Abnormal behaviour [Recovered/Resolved]
  - Agitation [Recovered/Resolved]
  - Tachycardia [Recovered/Resolved]
  - Psychomotor hyperactivity [Recovered/Resolved]
  - Hypertension [Recovered/Resolved]
  - Muscle contractions involuntary [Recovered/Resolved]
  - Rhabdomyolysis [Recovered/Resolved]
  - Retrograde amnesia [Recovered/Resolved]
  - Hyperthermia [Recovered/Resolved]

NARRATIVE: CASE EVENT DATE: 201506
